FAERS Safety Report 25754831 (Version 1)
Quarter: 2025Q3

REPORT INFORMATION
  Report Type: Report from Study
  Country: CA (occurrence: CA)
  Receive Date: 20250903
  Receipt Date: 20250903
  Transmission Date: 20251021
  Serious: Yes (Hospitalization)
  Sender: ROCHE
  Company Number: CA-ROCHE-10000204734

PATIENT
  Age: 55 Year
  Sex: Male
  Weight: 67 kg

DRUGS (15)
  1. ACTEMRA [Suspect]
     Active Substance: TOCILIZUMAB
     Indication: Still^s disease
     Dosage: DRUG DOSE FIRST ADMINISTERED IS 530 MG MILLIGRAM(S)
     Route: 042
     Dates: start: 20241121, end: 20241219
  2. ACTEMRA [Suspect]
     Active Substance: TOCILIZUMAB
     Dosage: MOREDOSAGEINFO B5040B11 / 2027-10-31
     Route: 042
     Dates: start: 20250207
  3. ACTEMRA [Suspect]
     Active Substance: TOCILIZUMAB
     Route: 042
  4. ACTEMRA [Suspect]
     Active Substance: TOCILIZUMAB
     Route: 042
  5. ACTEMRA [Suspect]
     Active Substance: TOCILIZUMAB
     Route: 042
  6. BENADRYL [Concomitant]
     Active Substance: DIPHENHYDRAMINE HYDROCHLORIDE
     Route: 042
     Dates: start: 20250207
  7. CALCIUM [Concomitant]
     Active Substance: CALCIUM
  8. CITALOPRAM [Concomitant]
     Active Substance: CITALOPRAM
  9. GABAPENTIN [Concomitant]
     Active Substance: GABAPENTIN
  10. MORPHINE [Concomitant]
     Active Substance: MORPHINE
  11. PLAQUENIL [Concomitant]
     Active Substance: HYDROXYCHLOROQUINE SULFATE
  12. PREDNISONE [Concomitant]
     Active Substance: PREDNISONE
  13. Lansoprole [Concomitant]
  14. SOLU-MEDROL [Concomitant]
     Active Substance: METHYLPREDNISOLONE SODIUM SUCCINATE
     Dates: start: 20250207
  15. VITAMIN D [Concomitant]
     Active Substance: VITAMIN D NOS

REACTIONS (5)
  - Blood pressure diastolic increased [Unknown]
  - Blood pressure diastolic abnormal [Unknown]
  - Heart rate decreased [Unknown]
  - Blood pressure systolic increased [Unknown]
  - Muscle strain [Unknown]

NARRATIVE: CASE EVENT DATE: 20250207
